FAERS Safety Report 8367394-6 (Version None)
Quarter: 2012Q1

REPORT INFORMATION
  Report Type: 
  Country: None (occurrence: None)
  Receive Date: 20120323
  Receipt Date: 20110812
  Transmission Date: 20120608
  Serious: Yes (Hospitalization)
  Sender: FDA-Public Use
  Company Number: 163-21880-11072611

PATIENT
  Age: 69 Year
  Sex: Male

DRUGS (9)
  1. ASPIRIN [Concomitant]
  2. MULTI FOR HIM (MULTIVITAMINS) [Concomitant]
  3. MEDICATION [Concomitant]
  4. AMBIEN [Concomitant]
  5. OXYCONTIN [Concomitant]
  6. REVLIMID [Suspect]
     Indication: MULTIPLE MYELOMA
     Dosage: 25 MG, 21, PO
     Route: 048
     Dates: start: 20110520
  7. DEXAMETHASONE [Concomitant]
  8. OXYCODONE HCL [Concomitant]
  9. VELCADE [Concomitant]

REACTIONS (2)
  - INFECTION [None]
  - NEUTROPENIA [None]
